FAERS Safety Report 6960544-5 (Version None)
Quarter: 2010Q3

REPORT INFORMATION
  Report Type: 
  Country: None (occurrence: None)
  Receive Date: 20100901
  Receipt Date: 20100824
  Transmission Date: 20110219
  Serious: Yes (Other)
  Sender: FDA-Public Use
  Company Number: US-PURDUE-USA-2010-0045825

PATIENT
  Sex: Male

DRUGS (2)
  1. OXYCONTIN [Suspect]
     Indication: BACK PAIN
     Dosage: 10 MG, BID
     Dates: start: 20100101
  2. TYLENOL W/ CODEINE [Concomitant]
     Indication: PRODUCT USED FOR UNKNOWN INDICATION
     Dosage: 2 TABLET, NOCTE

REACTIONS (8)
  - AMYOTROPHIC LATERAL SCLEROSIS [None]
  - BACK PAIN [None]
  - COLD SWEAT [None]
  - DRUG WITHDRAWAL SYNDROME [None]
  - FEELING ABNORMAL [None]
  - FEELING COLD [None]
  - HYPERHIDROSIS [None]
  - PERIPHERAL COLDNESS [None]
